FAERS Safety Report 8327300-7 (Version None)
Quarter: 2012Q2

REPORT INFORMATION
  Report Type: 
  Country: None (occurrence: None)
  Receive Date: 20120502
  Receipt Date: 20120418
  Transmission Date: 20120825
  Serious: Yes (Other)
  Sender: FDA-Public Use
  Company Number: SE-AMGEN-SWESP2012025998

PATIENT
  Age: 67 Year
  Sex: Female

DRUGS (14)
  1. ACETYLCYSTEINE [Concomitant]
     Dosage: UNK
  2. PULMICORT [Concomitant]
     Dosage: UNK
  3. ASPIRIN [Concomitant]
     Dosage: 75 MG, UNK
  4. NOVOMIX [Concomitant]
     Dosage: UNK
  5. CREON [Concomitant]
     Dosage: UNK
  6. METHOTREXATE [Suspect]
     Indication: RHEUMATOID ARTHRITIS
     Dosage: 20 MG, WEEKLY
     Route: 048
     Dates: end: 20120126
  7. LANSOPRAZOLE [Concomitant]
     Dosage: UNK
  8. ISOPTIN                            /00014302/ [Concomitant]
     Dosage: UNK
  9. ALVEDON [Concomitant]
     Dosage: 1 G, UNK
  10. AMILORIDE HYDROCHLORIDE [Concomitant]
     Dosage: UNK
  11. CALCICHEW-D3 [Concomitant]
     Dosage: UNK
  12. FOLACIN                            /00198401/ [Concomitant]
     Dosage: 5 MG, UNK
  13. LASIX [Concomitant]
     Dosage: 60 MG, UNK
  14. ENBREL [Suspect]
     Indication: RHEUMATOID ARTHRITIS
     Dosage: 50 MG, WEEKLY
     Route: 058
     Dates: end: 20120126

REACTIONS (1)
  - POLYNEUROPATHY [None]
